FAERS Safety Report 6500288-7 (Version None)
Quarter: 2009Q4

REPORT INFORMATION
  Report Type: 
  Country: None (occurrence: None)
  Receive Date: 20091216
  Receipt Date: 20091207
  Transmission Date: 20100525
  Serious: Yes (Hospitalization, Other)
  Sender: FDA-Public Use
  Company Number: FR-ROCHE-668010

PATIENT
  Sex: Male

DRUGS (13)
  1. CAPECITABINE [Suspect]
     Indication: GASTRIC CANCER
     Dosage: COURSE 1
     Route: 065
     Dates: start: 20070703
  2. CAPECITABINE [Suspect]
     Dosage: COURSE 2
     Route: 065
     Dates: start: 20070917
  3. EPIRUBICIN HCL [Suspect]
     Indication: GASTRIC CANCER
     Route: 065
     Dates: start: 20070703
  4. EPIRUBICIN HCL [Suspect]
     Route: 065
     Dates: start: 20070917
  5. CISPLATIN [Suspect]
     Indication: GASTRIC CANCER
     Dosage: COURSE 1
     Route: 065
     Dates: start: 20070703
  6. CISPLATIN [Suspect]
     Dosage: COURSE 2
     Route: 065
     Dates: start: 20070917
  7. POLYETHYLENE GLYCOL [Concomitant]
     Indication: CONSTIPATION
     Route: 048
     Dates: start: 20070725
  8. STILNOX [Concomitant]
     Indication: INSOMNIA
     Route: 048
     Dates: start: 20070620, end: 20070814
  9. HEPTAMYL [Concomitant]
     Indication: ORTHOSTATIC HYPOTENSION
     Route: 048
     Dates: start: 20070701
  10. LEXOMIL [Concomitant]
     Indication: ANXIETY
     Route: 048
     Dates: start: 20070815
  11. GRANOCYTE [Concomitant]
     Indication: NEUTROPENIA
     Route: 058
     Dates: start: 20070820, end: 20070825
  12. ZOPHREN [Concomitant]
     Indication: NAUSEA
     Route: 048
     Dates: start: 20070815, end: 20070819
  13. RHINADVIL [Concomitant]
     Indication: RHINITIS
     Dosage: AS NEEDED
     Route: 048
     Dates: start: 20070801

REACTIONS (4)
  - GENERAL PHYSICAL HEALTH DETERIORATION [None]
  - LOSS OF CONSCIOUSNESS [None]
  - MALAISE [None]
  - NEUTROPENIA [None]
